FAERS Safety Report 18305856 (Version 1)
Quarter: 2020Q3

REPORT INFORMATION
  Report Type: Spontaneous
  Country: AU (occurrence: AU)
  Receive Date: 20200923
  Receipt Date: 20200923
  Transmission Date: 20201103
  Serious: Yes (Other)
  Sender: FDA-Public Use
  Company Number: AU-ANIPHARMA-2020-AU-000220

PATIENT
  Sex: Male

DRUGS (1)
  1. ATACAND [Suspect]
     Active Substance: CANDESARTAN CILEXETIL
     Indication: BLOOD PRESSURE MEASUREMENT
     Dosage: 16 MG UNK / 16 MG UNK
     Route: 048

REACTIONS (4)
  - Headache [Recovering/Resolving]
  - Blindness [Recovering/Resolving]
  - Hypertension [Unknown]
  - Eye pain [Recovering/Resolving]
